FAERS Safety Report 4733197-4 (Version None)
Quarter: 2005Q3

REPORT INFORMATION
  Report Type: 
  Country: None (occurrence: None)
  Receive Date: 20050803
  Receipt Date: 20050720
  Transmission Date: 20060218
  Serious: Yes (Other)
  Sender: FDA-Public Use
  Company Number: US-NOVOPROD-245723

PATIENT
  Age: 48 Year
  Sex: Female
  Weight: 190 kg

DRUGS (15)
  1. ESTIVAN [Concomitant]
     Indication: MENOPAUSE
  2. GLUCOFORMIN [Concomitant]
     Indication: INSULIN-REQUIRING TYPE II DIABETES MELLITUS
  3. NOVOLOG [Suspect]
     Indication: INSULIN-REQUIRING TYPE II DIABETES MELLITUS
     Dosage: SLIDING SCALE
     Route: 058
     Dates: start: 20020101
  4. AMBIEN [Concomitant]
     Indication: INSOMNIA
     Dosage: UNK, UNK
  5. VICODIN [Concomitant]
     Indication: ARTHRALGIA
  6. GLYBURIDE [Concomitant]
     Indication: INSULIN-REQUIRING TYPE II DIABETES MELLITUS
  7. POTASSIUM CHLORIDE [Concomitant]
     Indication: PROPHYLAXIS
  8. LASIX [Concomitant]
     Indication: FLUID RETENTION
  9. NABUMETONE [Concomitant]
     Indication: ANTIINFLAMMATORY THERAPY
  10. TRIAMTERENE [Concomitant]
     Indication: FLUID RETENTION
  11. LISINOPRIL [Concomitant]
     Indication: HYPERTENSION
  12. GLUCOSAMINE W/CHONDROITIN [Concomitant]
     Indication: ARTHRITIS
  13. ASPIRIN [Concomitant]
     Indication: PROPHYLAXIS
  14. MULTI-VIT [Concomitant]
     Indication: PROPHYLAXIS
  15. LANTUS [Concomitant]
     Indication: INSULIN-REQUIRING TYPE II DIABETES MELLITUS

REACTIONS (4)
  - BLOOD GLUCOSE INCREASED [None]
  - CELLULITIS [None]
  - PHARMACEUTICAL PRODUCT COMPLAINT [None]
  - VISION BLURRED [None]
